FAERS Safety Report 23393360 (Version 1)
Quarter: 2024Q1

REPORT INFORMATION
  Report Type: Spontaneous
  Country: US (occurrence: US)
  Receive Date: 20240111
  Receipt Date: 20240111
  Transmission Date: 20240410
  Serious: No
  Sender: FDA-Public Use
  Company Number: US-GLAXOSMITHKLINE-USCH2024AMR001183

PATIENT
  Age: 65 Year
  Sex: Male

DRUGS (1)
  1. VOLTAREN ARTHRITIS PAIN [Suspect]
     Active Substance: DICLOFENAC SODIUM
     Indication: Arthralgia
     Dosage: TWO KNEES - 4 DOSES A DAY.16 GMS PER KNEE A DAY..DOSES EVERY 6 HOURS NOT TO EXCEED TOTAL OF 32 GM

REACTIONS (1)
  - Product use in unapproved indication [Unknown]
